FAERS Safety Report 7541044-0 (Version None)
Quarter: 2011Q2

REPORT INFORMATION
  Report Type: 
  Country: None (occurrence: None)
  Receive Date: 20110610
  Receipt Date: 20101129
  Transmission Date: 20111010
  Serious: No
  Sender: FDA-Public Use
  Company Number: A0896724A

PATIENT
  Age: 88 Year
  Sex: Male

DRUGS (6)
  1. CRESTOR [Concomitant]
  2. ALTACE [Concomitant]
  3. UNKNOWN MEDICATION [Concomitant]
  4. ALTABAX [Suspect]
     Indication: DERMATITIS
     Route: 061
     Dates: start: 20101124, end: 20101101
  5. BACITRACIN [Concomitant]
  6. PLAVIX [Concomitant]

REACTIONS (3)
  - APPLICATION SITE SWELLING [None]
  - APPLICATION SITE PAIN [None]
  - ARTHRALGIA [None]
